FAERS Safety Report 8366059-4 (Version None)
Quarter: 2012Q2

REPORT INFORMATION
  Report Type: 
  Country: None (occurrence: None)
  Receive Date: 20120516
  Receipt Date: 20120516
  Transmission Date: 20120825
  Serious: Yes (Hospitalization)
  Sender: FDA-Public Use
  Company Number: None

PATIENT
  Age: 61 Year
  Sex: Female
  Weight: 58.9676 kg

DRUGS (2)
  1. AZITHROMYCIN [Suspect]
     Indication: BACTERIAL INFECTION
     Dosage: 6 DAILY 5 DAYS ORAL
     Route: 048
     Dates: start: 20120413, end: 20120417
  2. AZITHROMYCIN [Suspect]
     Indication: BRONCHITIS
     Dosage: 6 DAILY 5 DAYS ORAL
     Route: 048
     Dates: start: 20120413, end: 20120417

REACTIONS (2)
  - GASTROINTESTINAL INFLAMMATION [None]
  - CYSTITIS [None]
